FAERS Safety Report 12398379 (Version 4)
Quarter: 2016Q2

REPORT INFORMATION
  Report Type: Spontaneous
  Country: JP (occurrence: JP)
  Receive Date: 20160524
  Receipt Date: 20160623
  Transmission Date: 20160815
  Serious: Yes (Death)
  Sender: FDA-Public Use
  Company Number: JP-HORIZON-BUP-0059-2016

PATIENT
  Age: 47 Year
  Sex: Male

DRUGS (6)
  1. SULFAMETHOXAZOLE AND TRIMETHOPRIM [Concomitant]
     Active Substance: SULFAMETHOXAZOLE\TRIMETHOPRIM
     Indication: PROPHYLAXIS
     Dosage: 1 DF DAILY
     Route: 048
     Dates: end: 20160405
  2. DEPAKENE [Concomitant]
     Active Substance: VALPROIC ACID
     Indication: PROPHYLAXIS
     Dosage: 0.4 G DAILY
     Route: 048
     Dates: end: 20160405
  3. E KEPPRA [Concomitant]
     Active Substance: LEVETIRACETAM
     Indication: PROPHYLAXIS
     Dosage: 1 G DAILY
     Route: 048
     Dates: end: 20160405
  4. BUPHENYL [Suspect]
     Active Substance: SODIUM PHENYLBUTYRATE
     Indication: CENTRAL NERVOUS SYSTEM LYMPHOMA
     Dosage: 3 DF 3 TIMES DAILY, DAILY DOSE 4500 G
     Route: 048
     Dates: start: 20160323, end: 20160405
  5. DECADRON [Concomitant]
     Active Substance: DEXAMETHASONE
     Indication: PROPHYLAXIS
     Dosage: 1.5 MG DAILY
     Route: 048
     Dates: end: 20160405
  6. TETRAMIDE [Concomitant]
     Active Substance: MIANSERIN
     Indication: PROPHYLAXIS
     Dosage: 10 MG DAILY
     Route: 048
     Dates: end: 20160405

REACTIONS (2)
  - Off label use [Unknown]
  - Central nervous system lymphoma [Fatal]

NARRATIVE: CASE EVENT DATE: 20160324
